FAERS Safety Report 4483348-4 (Version None)
Quarter: 2004Q4

REPORT INFORMATION
  Report Type: 
  Country: None (occurrence: None)
  Receive Date: 20041020
  Receipt Date: 20041007
  Transmission Date: 20050328
  Serious: Yes (Disabling)
  Sender: FDA-Public Use
  Company Number: A-CH2004-05609

PATIENT
  Age: 41 Year
  Sex: Female
  Weight: 98 kg

DRUGS (7)
  1. ZAVESCA [Suspect]
     Indication: GAUCHER'S DISEASE
     Dosage: SEE IMAGE
     Route: 048
     Dates: start: 20040127, end: 20040303
  2. ZAVESCA [Suspect]
     Indication: GAUCHER'S DISEASE
     Dosage: SEE IMAGE
     Route: 048
     Dates: start: 20040304, end: 20040307
  3. ZAVESCA [Suspect]
     Indication: GAUCHER'S DISEASE
     Dosage: SEE IMAGE
     Route: 048
     Dates: start: 20040603, end: 20040601
  4. ZAVESCA [Suspect]
     Indication: GAUCHER'S DISEASE
     Dosage: SEE IMAGE
     Route: 048
     Dates: start: 20040601, end: 20040802
  5. CEREZYME (IMIGLUCERASE) [Concomitant]
  6. CIRAMIL (CITALOPRAM HYDROBROMIDE) [Concomitant]
  7. TYLENOL [Concomitant]

REACTIONS (5)
  - ACTIVITIES OF DAILY LIVING IMPAIRED [None]
  - DYSGRAPHIA [None]
  - RESTLESSNESS [None]
  - SLEEP DISORDER [None]
  - TREMOR [None]
